FAERS Safety Report 9340203 (Version 3)
Quarter: 2014Q2

REPORT INFORMATION
  Report Type: Spontaneous
  Country: US (occurrence: US)
  Receive Date: 20130610
  Receipt Date: 20140609
  Transmission Date: 20141212
  Serious: Yes (Other)
  Sender: FDA-Public Use
  Company Number: US-ASTELLAS-2013US005790

PATIENT
  Age: 65 Year
  Sex: Male

DRUGS (2)
  1. XTANDI [Suspect]
     Indication: PROSTATE CANCER METASTATIC
     Route: 048
     Dates: start: 20121020, end: 20130510
  2. XTANDI [Suspect]
     Route: 048
     Dates: start: 20140326

REACTIONS (4)
  - Malignant neoplasm progression [Not Recovered/Not Resolved]
  - Bone lesion [Unknown]
  - Metastases to bone [Unknown]
  - Drug ineffective [Unknown]
